FAERS Safety Report 9467753 (Version 2)
Quarter: 2013Q3

REPORT INFORMATION
  Report Type: Spontaneous
  Country: CA (occurrence: CA)
  Receive Date: 20130821
  Receipt Date: 20130827
  Transmission Date: 20140515
  Serious: Yes (Death, Hospitalization)
  Sender: FDA-Public Use
  Company Number: CA-ASTELLAS-2013US008869

PATIENT
  Age: 79 Year
  Sex: Male

DRUGS (1)
  1. XTANDI [Suspect]
     Indication: NEOPLASM MALIGNANT
     Dosage: 160 MG, UNKNOWN/D
     Route: 048
     Dates: start: 20130621, end: 20130731

REACTIONS (2)
  - Death [Fatal]
  - General physical health deterioration [Unknown]
